FAERS Safety Report 4994286-2 (Version None)
Quarter: 2006Q1

REPORT INFORMATION
  Report Type: 
  Country: None (occurrence: None)
  Receive Date: 20060314
  Receipt Date: 20050805
  Transmission Date: 20060701
  Serious: Yes (Other)
  Sender: FDA-Public Use
  Company Number: 200512357BCC

PATIENT
  Age: 62 Year
  Sex: Male
  Weight: 83.9154 kg

DRUGS (6)
  1. ALEVE (CAPLET) [Suspect]
     Indication: EAR PAIN
     Dosage: 220 MG, ONCE, ORAL
     Route: 048
     Dates: start: 20050605
  2. ALEVE (CAPLET) [Suspect]
     Indication: HEADACHE
     Dosage: 220 MG, ONCE, ORAL
     Route: 048
     Dates: start: 20050605
  3. ALEVE (CAPLET) [Suspect]
     Indication: SHOULDER PAIN
     Dosage: 220 MG, ONCE, ORAL
     Route: 048
     Dates: start: 20050605
  4. ALEVE (CAPLET) [Suspect]
     Indication: EAR PAIN
     Dosage: 220 MG, ONCE, ORAL
     Route: 048
     Dates: start: 20050605
  5. ALEVE (CAPLET) [Suspect]
     Indication: HEADACHE
     Dosage: 220 MG, ONCE, ORAL
     Route: 048
     Dates: start: 20050605
  6. ALEVE (CAPLET) [Suspect]
     Indication: SHOULDER PAIN
     Dosage: 220 MG, ONCE, ORAL
     Route: 048
     Dates: start: 20050605

REACTIONS (10)
  - ANAPHYLACTIC REACTION [None]
  - ASTHENIA [None]
  - CYANOSIS [None]
  - DYSPNOEA [None]
  - ERYTHEMA [None]
  - HYPERHIDROSIS [None]
  - JOINT SWELLING [None]
  - OCULAR HYPERAEMIA [None]
  - ORAL DISCOMFORT [None]
  - SKIN BURNING SENSATION [None]
